FAERS Safety Report 4527962-6 (Version None)
Quarter: 2004Q4

REPORT INFORMATION
  Report Type: 
  Country: None (occurrence: None)
  Receive Date: 20041123
  Receipt Date: 20040124
  Transmission Date: 20050328
  Serious: Yes (Other)
  Sender: FDA-Public Use
  Company Number: 2003123459

PATIENT
  Age: 74 Year
  Sex: Male

DRUGS (5)
  1. LIPITOR [Suspect]
     Indication: BLOOD CHOLESTEROL INCREASED
  2. TIKOSYN [Suspect]
     Indication: ATRIAL FIBRILLATION
     Dosage: ORAL
     Route: 048
     Dates: start: 20031101
  3. EZETIMIBE (EZETIMIBE) [Suspect]
     Indication: ILL-DEFINED DISORDER
     Dates: end: 20030101
  4. ALL OTHER THERAPEUTIC PRODUCTS (ALL OTHER THERAPEUTIC PRODUCTS) [Suspect]
     Indication: ILL-DEFINED DISORDER
  5. SIMVASTATIN [Suspect]
     Indication: ILL-DEFINED DISORDER

REACTIONS (4)
  - ATRIAL FIBRILLATION [None]
  - FLUID RETENTION [None]
  - MYALGIA [None]
  - PAIN [None]
